FAERS Safety Report 23379556 (Version 2)
Quarter: 2024Q1

REPORT INFORMATION
  Report Type: Spontaneous
  Country: US (occurrence: US)
  Receive Date: 20240108
  Receipt Date: 20240117
  Transmission Date: 20240410
  Serious: Yes (Hospitalization)
  Sender: FDA-Public Use
  Company Number: US-BIOMARINAP-US-2024-155007

PATIENT

DRUGS (1)
  1. NAGLAZYME [Suspect]
     Active Substance: GALSULFASE
     Indication: Mucopolysaccharidosis VI
     Dosage: 1 MILLIGRAM/KILOGRAM, QW
     Route: 042
     Dates: start: 20231012

REACTIONS (8)
  - Post-traumatic epilepsy [Recovered/Resolved]
  - Hemiparesis [Recovered/Resolved]
  - Subdural haemorrhage [Recovered/Resolved]
  - Head injury [Recovered/Resolved]
  - Fall [Recovered/Resolved]
  - Skin disorder [Unknown]
  - Subdural haematoma [Recovered/Resolved]
  - Anisocoria [Recovered/Resolved]

NARRATIVE: CASE EVENT DATE: 20231201
